FAERS Safety Report 4659943-6 (Version None)
Quarter: 2005Q2

REPORT INFORMATION
  Report Type: 
  Country: None (occurrence: None)
  Receive Date: 20050512
  Receipt Date: 20040917
  Transmission Date: 20051028
  Serious: Yes (Disabling, Other)
  Sender: FDA-Public Use
  Company Number: 200417096US

PATIENT
  Sex: Female
  Weight: 98 kg

DRUGS (9)
  1. TAXOTERE [Suspect]
     Indication: BREAST CANCER
     Route: 041
     Dates: start: 20021114, end: 20030116
  2. KYTRIL [Concomitant]
     Dosage: DOSE: UNK
  3. DECADRON [Concomitant]
     Dosage: DOSE: UNK
  4. NEULASTA [Concomitant]
     Dosage: DOSE: UNK
  5. ADRIAMYCIN [Concomitant]
     Route: 042
     Dates: start: 20021114, end: 20030116
  6. COZAAR [Concomitant]
     Indication: HYPERTENSION
     Route: 048
     Dates: start: 20000101
  7. HYDROCHLOROTHIAZIDE [Concomitant]
     Indication: HYPERTENSION
     Dates: start: 20000101
  8. SYNTHROID [Concomitant]
     Indication: HYPOTHYROIDISM
  9. COREG [Concomitant]

REACTIONS (13)
  - CARDIOMYOPATHY [None]
  - DEAFNESS NEUROSENSORY [None]
  - DEHYDRATION [None]
  - DIARRHOEA [None]
  - FATIGUE [None]
  - LACRIMATION INCREASED [None]
  - LEUKOPENIA [None]
  - MYALGIA [None]
  - NAUSEA [None]
  - NEUROPATHY PERIPHERAL [None]
  - NEUTROPENIA [None]
  - ONYCHOMADESIS [None]
  - VOMITING [None]
